FAERS Safety Report 6720521-6 (Version None)
Quarter: 2010Q2

REPORT INFORMATION
  Report Type: 
  Country: None (occurrence: None)
  Receive Date: 20100506
  Receipt Date: 20100422
  Transmission Date: 20101027
  Serious: Yes (Congenital Anomaly)
  Sender: FDA-Public Use
  Company Number: 167-20484-09090439

PATIENT
  Sex: Male
  Weight: 3.5 kg

DRUGS (1)
  1. INNOHEP [Suspect]
     Indication: DEEP VEIN THROMBOSIS
     Dosage: TRANSPLACENTAL
     Route: 064
     Dates: start: 20060905, end: 20061204

REACTIONS (5)
  - CONGENITAL ANOMALY [None]
  - LARGE FOR DATES BABY [None]
  - MATERNAL DRUGS AFFECTING FOETUS [None]
  - PENIS DISORDER [None]
  - PILONIDAL CYST CONGENITAL [None]
